FAERS Safety Report 15799846 (Version 1)
Quarter: 2019Q1

REPORT INFORMATION
  Report Type: Spontaneous
  Country: US (occurrence: US)
  Receive Date: 20190108
  Receipt Date: 20190108
  Transmission Date: 20190417
  Serious: Yes (Hospitalization, Other)
  Sender: FDA-Public Use
  Company Number: US-OTSUKA-2018_016729

PATIENT
  Age: 46 Year
  Sex: Male
  Weight: 99.8 kg

DRUGS (14)
  1. LAMICTAL [Concomitant]
     Active Substance: LAMOTRIGINE
     Indication: PRODUCT USED FOR UNKNOWN INDICATION
     Dosage: 50 MG, BID
     Route: 048
  2. CELEXA [Concomitant]
     Active Substance: CITALOPRAM HYDROBROMIDE
     Indication: PRODUCT USED FOR UNKNOWN INDICATION
     Dosage: 40 MG, UNK
     Route: 065
  3. BUSPIRONE [Concomitant]
     Active Substance: BUSPIRONE HYDROCHLORIDE
     Indication: PRODUCT USED FOR UNKNOWN INDICATION
     Dosage: UNK
     Route: 048
  4. AMOXICILLIN. [Concomitant]
     Active Substance: AMOXICILLIN
     Indication: PERIORBITAL CELLULITIS
     Dosage: 875 MG, BID
     Route: 048
  5. VISTARIL [Concomitant]
     Active Substance: HYDROXYZINE PAMOATE
     Indication: INSOMNIA
     Dosage: UNK
     Route: 065
     Dates: start: 20080101
  6. ABILIFY [Suspect]
     Active Substance: ARIPIPRAZOLE
     Dosage: 20 MG, QD (BEDTIME)
     Route: 048
     Dates: start: 20080608, end: 20180411
  7. NORVASC [Concomitant]
     Active Substance: AMLODIPINE BESYLATE
     Indication: PRODUCT USED FOR UNKNOWN INDICATION
     Dosage: 10 MG, QD
     Route: 065
  8. OMEPRAZOLE. [Concomitant]
     Active Substance: OMEPRAZOLE
     Indication: PRODUCT USED FOR UNKNOWN INDICATION
     Dosage: 20 MG, BID
     Route: 065
  9. ABILIFY [Suspect]
     Active Substance: ARIPIPRAZOLE
     Dosage: 2 DF, QD
     Route: 048
  10. ENALAPRIL [Concomitant]
     Active Substance: ENALAPRIL
     Dosage: UNK
     Route: 065
     Dates: start: 20160201
  11. REMERON [Concomitant]
     Active Substance: MIRTAZAPINE
     Indication: PRODUCT USED FOR UNKNOWN INDICATION
     Dosage: 45 MG, QD (BEDTIME)
     Route: 065
     Dates: start: 20060101
  12. ABILIFY [Suspect]
     Active Substance: ARIPIPRAZOLE
     Indication: BIPOLAR I DISORDER
     Dosage: 5 MG, QD
     Route: 048
     Dates: start: 20080602
  13. ENALAPRIL [Concomitant]
     Active Substance: ENALAPRIL
     Indication: PRODUCT USED FOR UNKNOWN INDICATION
     Dosage: UNK
     Route: 065
  14. PRAZOSIN. [Concomitant]
     Active Substance: PRAZOSIN
     Indication: PRODUCT USED FOR UNKNOWN INDICATION
     Dosage: 4 MG, UNK
     Route: 048

REACTIONS (23)
  - Transient ischaemic attack [Unknown]
  - Gastrointestinal surgery [Unknown]
  - Anhedonia [Unknown]
  - Obsessive-compulsive disorder [Recovered/Resolved]
  - Gambling disorder [Not Recovered/Not Resolved]
  - Affective disorder [Unknown]
  - Economic problem [Unknown]
  - Suicidal ideation [Recovered/Resolved]
  - Injury [Unknown]
  - Hypoaesthesia [Unknown]
  - Mental disorder [Unknown]
  - Suicide attempt [Recovered/Resolved]
  - Personality disorder [Unknown]
  - Dysarthria [Unknown]
  - Dyspnoea [Unknown]
  - Chest pain [Unknown]
  - Condition aggravated [Not Recovered/Not Resolved]
  - Compulsive shopping [Recovered/Resolved]
  - Substance abuse [Unknown]
  - Pulmonary mass [Unknown]
  - Hypertensive heart disease [Unknown]
  - Insomnia [Unknown]
  - Anxiety [Unknown]

NARRATIVE: CASE EVENT DATE: 200809
